FAERS Safety Report 9347868 (Version 1)
Quarter: 2013Q2

REPORT INFORMATION
  Report Type: Spontaneous
  Country: US (occurrence: None)
  Receive Date: 20130612
  Receipt Date: 20130612
  Transmission Date: 20140414
  Serious: Yes (Other)
  Sender: FDA-Public Use
  Company Number: None

PATIENT
  Age: 47 Year
  Sex: Female
  Weight: 63.05 kg

DRUGS (1)
  1. CYMBALTA [Suspect]
     Route: 048
     Dates: start: 20100101, end: 20130501

REACTIONS (8)
  - Pain [None]
  - Hypophagia [None]
  - Nausea [None]
  - Abdominal distension [None]
  - Lethargy [None]
  - Depression [None]
  - Ileus paralytic [None]
  - Memory impairment [None]
